FAERS Safety Report 18919135 (Version 2)
Quarter: 2022Q1

REPORT INFORMATION
  Report Type: Spontaneous
  Country: US (occurrence: US)
  Receive Date: 20210220
  Receipt Date: 20220222
  Transmission Date: 20220423
  Serious: Yes (Other)
  Sender: FDA-Public Use
  Company Number: US-UCBSA-2021006514

PATIENT
  Age: 41 Year
  Sex: Male

DRUGS (1)
  1. LEVETIRACETAM [Suspect]
     Active Substance: LEVETIRACETAM
     Indication: Product used for unknown indication
     Dosage: UNK

REACTIONS (5)
  - Seizure [Unknown]
  - Muscle spasms [Unknown]
  - Pain in extremity [Unknown]
  - Neck pain [Unknown]
  - Choking sensation [Unknown]

NARRATIVE: CASE EVENT DATE: 20200401
